FAERS Safety Report 23841864 (Version 1)
Quarter: 2024Q2

REPORT INFORMATION
  Report Type: Spontaneous
  Country: CH (occurrence: CH)
  Receive Date: 20240510
  Receipt Date: 20240510
  Transmission Date: 20240715
  Serious: Yes (Other)
  Sender: FDA-Public Use
  Company Number: CH-LUNDBECK-DKLU3077827

PATIENT
  Age: 41 Year
  Sex: Female

DRUGS (1)
  1. BRINTELLIX [Suspect]
     Active Substance: VORTIOXETINE HYDROBROMIDE
     Indication: Depression
     Dosage: 5 MILLIGRAM
     Route: 048
     Dates: start: 20240414

REACTIONS (3)
  - Restlessness [Unknown]
  - Aggression [Unknown]
  - Nausea [Unknown]

NARRATIVE: CASE EVENT DATE: 20240414
